FAERS Safety Report 14411950 (Version 2)
Quarter: 2018Q1

REPORT INFORMATION
  Report Type: Not Available
  Country: US (occurrence: US)
  Receive Date: 20180119
  Receipt Date: 20180306
  Transmission Date: 20180509
  Serious: No
  Sender: FDA-Public Use
  Company Number: US-NEUROCRINE BIOSCIENCES INC.-2017NBI01714

PATIENT
  Age: 54 Year
  Sex: Female

DRUGS (2)
  1. INGREZZA [Suspect]
     Active Substance: VALBENAZINE
     Route: 048
     Dates: start: 20170719, end: 20180119
  2. INGREZZA [Suspect]
     Active Substance: VALBENAZINE
     Indication: PRODUCT USED FOR UNKNOWN INDICATION
     Route: 048
     Dates: start: 20170711, end: 20170718

REACTIONS (4)
  - Insomnia [Unknown]
  - Drug ineffective [None]
  - Constipation [Unknown]
  - Coordination abnormal [Unknown]

NARRATIVE: CASE EVENT DATE: 2017
